FAERS Safety Report 25524117 (Version 1)
Quarter: 2025Q3

REPORT INFORMATION
  Report Type: Report from Study
  Country: EU (occurrence: EU)
  Receive Date: 20250707
  Receipt Date: 20250707
  Transmission Date: 20251020
  Serious: Yes (Hospitalization)
  Sender: MYLAN
  Company Number: EU-ADIENNEP-2019AD000342

PATIENT
  Age: 39 Year
  Sex: Male
  Weight: 59 kg

DRUGS (48)
  1. BUSULFAN [Suspect]
     Active Substance: BUSULFAN
     Indication: Allogenic stem cell transplantation
     Dates: start: 20190102, end: 20190103
  2. BUSULFAN [Suspect]
     Active Substance: BUSULFAN
     Route: 042
     Dates: start: 20190102, end: 20190103
  3. BUSULFAN [Suspect]
     Active Substance: BUSULFAN
     Route: 042
     Dates: start: 20190102, end: 20190103
  4. BUSULFAN [Suspect]
     Active Substance: BUSULFAN
     Dates: start: 20190102, end: 20190103
  5. THIOTEPA [Suspect]
     Active Substance: THIOTEPA
     Indication: Allogenic stem cell transplantation
     Dates: start: 20190101, end: 20190101
  6. THIOTEPA [Suspect]
     Active Substance: THIOTEPA
     Route: 042
     Dates: start: 20190101, end: 20190101
  7. THIOTEPA [Suspect]
     Active Substance: THIOTEPA
     Route: 042
     Dates: start: 20190101, end: 20190101
  8. THIOTEPA [Suspect]
     Active Substance: THIOTEPA
     Dates: start: 20190101, end: 20190101
  9. FLUDARABINE [Suspect]
     Active Substance: FLUDARABINE PHOSPHATE
     Indication: Allogenic stem cell transplantation
     Dates: start: 20190102, end: 20190105
  10. FLUDARABINE [Suspect]
     Active Substance: FLUDARABINE PHOSPHATE
     Route: 042
     Dates: start: 20190102, end: 20190105
  11. FLUDARABINE [Suspect]
     Active Substance: FLUDARABINE PHOSPHATE
     Route: 042
     Dates: start: 20190102, end: 20190105
  12. FLUDARABINE [Suspect]
     Active Substance: FLUDARABINE PHOSPHATE
     Dates: start: 20190102, end: 20190105
  13. CYCLOPHOSPHAMIDE [Suspect]
     Active Substance: CYCLOPHOSPHAMIDE
     Indication: Prophylaxis
     Dates: start: 20190110, end: 20190111
  14. CYCLOPHOSPHAMIDE [Suspect]
     Active Substance: CYCLOPHOSPHAMIDE
     Route: 042
     Dates: start: 20190110, end: 20190111
  15. CYCLOPHOSPHAMIDE [Suspect]
     Active Substance: CYCLOPHOSPHAMIDE
     Route: 042
     Dates: start: 20190110, end: 20190111
  16. CYCLOPHOSPHAMIDE [Suspect]
     Active Substance: CYCLOPHOSPHAMIDE
     Dates: start: 20190110, end: 20190111
  17. NEORAL [Suspect]
     Active Substance: CYCLOSPORINE
     Indication: Prophylaxis
     Route: 065
  18. NEORAL [Suspect]
     Active Substance: CYCLOSPORINE
  19. NEORAL [Suspect]
     Active Substance: CYCLOSPORINE
  20. NEORAL [Suspect]
     Active Substance: CYCLOSPORINE
     Route: 065
  21. NEORAL [Suspect]
     Active Substance: CYCLOSPORINE
     Dosage: 125 MILLIGRAM, QD (125 MG DAILY)
     Route: 065
     Dates: start: 20190627
  22. NEORAL [Suspect]
     Active Substance: CYCLOSPORINE
     Dosage: 125 MILLIGRAM, QD (125 MG DAILY)
     Dates: start: 20190627
  23. NEORAL [Suspect]
     Active Substance: CYCLOSPORINE
     Dosage: 125 MILLIGRAM, QD (125 MG DAILY)
     Dates: start: 20190627
  24. NEORAL [Suspect]
     Active Substance: CYCLOSPORINE
     Dosage: 125 MILLIGRAM, QD (125 MG DAILY)
     Route: 065
     Dates: start: 20190627
  25. NEORAL [Suspect]
     Active Substance: CYCLOSPORINE
     Dosage: 200 MILLIGRAM, QD (2 DOSAGES 100 MG DAILY)
     Route: 065
     Dates: start: 20190708, end: 20190731
  26. NEORAL [Suspect]
     Active Substance: CYCLOSPORINE
     Dosage: 200 MILLIGRAM, QD (2 DOSAGES 100 MG DAILY)
     Route: 065
     Dates: start: 20190708, end: 20190731
  27. NEORAL [Suspect]
     Active Substance: CYCLOSPORINE
     Dosage: 200 MILLIGRAM, QD (2 DOSAGES 100 MG DAILY)
     Dates: start: 20190708, end: 20190731
  28. NEORAL [Suspect]
     Active Substance: CYCLOSPORINE
     Dosage: 200 MILLIGRAM, QD (2 DOSAGES 100 MG DAILY)
     Dates: start: 20190708, end: 20190731
  29. PREDNISONE [Concomitant]
     Active Substance: PREDNISONE
     Dosage: 25 MILLIGRAM, QD (25 MG DAILY)
  30. PREDNISONE [Concomitant]
     Active Substance: PREDNISONE
     Dosage: 25 MILLIGRAM, QD (25 MG DAILY)
  31. PREDNISONE [Concomitant]
     Active Substance: PREDNISONE
     Dosage: 25 MILLIGRAM, QD (25 MG DAILY)
     Route: 065
  32. PREDNISONE [Concomitant]
     Active Substance: PREDNISONE
     Dosage: 25 MILLIGRAM, QD (25 MG DAILY)
     Route: 065
  33. PREDNISONE [Concomitant]
     Active Substance: PREDNISONE
     Dosage: 30 MILLIGRAM, QD (30 MG DAILY)
  34. PREDNISONE [Concomitant]
     Active Substance: PREDNISONE
     Dosage: 30 MILLIGRAM, QD (30 MG DAILY)
  35. PREDNISONE [Concomitant]
     Active Substance: PREDNISONE
     Dosage: 30 MILLIGRAM, QD (30 MG DAILY)
     Route: 065
  36. PREDNISONE [Concomitant]
     Active Substance: PREDNISONE
     Dosage: 30 MILLIGRAM, QD (30 MG DAILY)
     Route: 065
  37. PREDNISONE [Concomitant]
     Active Substance: PREDNISONE
     Dosage: 40 MILLIGRAM, QD (40 MG DAILY)
  38. PREDNISONE [Concomitant]
     Active Substance: PREDNISONE
     Dosage: 40 MILLIGRAM, QD (40 MG DAILY)
     Route: 065
  39. PREDNISONE [Concomitant]
     Active Substance: PREDNISONE
     Dosage: 40 MILLIGRAM, QD (40 MG DAILY)
  40. PREDNISONE [Concomitant]
     Active Substance: PREDNISONE
     Dosage: 40 MILLIGRAM, QD (40 MG DAILY)
     Route: 065
  41. PONATINIB [Concomitant]
     Active Substance: PONATINIB
     Dosage: 15 MILLIGRAM, QD (15 MG DAILY)
     Dates: end: 20190521
  42. PONATINIB [Concomitant]
     Active Substance: PONATINIB
     Dosage: 15 MILLIGRAM, QD (15 MG DAILY)
     Route: 065
     Dates: end: 20190521
  43. PONATINIB [Concomitant]
     Active Substance: PONATINIB
     Dosage: 15 MILLIGRAM, QD (15 MG DAILY)
     Route: 065
     Dates: end: 20190521
  44. PONATINIB [Concomitant]
     Active Substance: PONATINIB
     Dosage: 15 MILLIGRAM, QD (15 MG DAILY)
     Dates: end: 20190521
  45. GLIVEC [Concomitant]
     Active Substance: IMATINIB MESYLATE
     Dosage: 200 MILLIGRAM, QD (200 MG DAILY)
     Dates: start: 20190521, end: 20190625
  46. GLIVEC [Concomitant]
     Active Substance: IMATINIB MESYLATE
     Dosage: 200 MILLIGRAM, QD (200 MG DAILY)
     Route: 042
     Dates: start: 20190521, end: 20190625
  47. GLIVEC [Concomitant]
     Active Substance: IMATINIB MESYLATE
     Dosage: 200 MILLIGRAM, QD (200 MG DAILY)
     Route: 042
     Dates: start: 20190521, end: 20190625
  48. GLIVEC [Concomitant]
     Active Substance: IMATINIB MESYLATE
     Dosage: 200 MILLIGRAM, QD (200 MG DAILY)
     Dates: start: 20190521, end: 20190625

REACTIONS (1)
  - Acute polyneuropathy [Not Recovered/Not Resolved]

NARRATIVE: CASE EVENT DATE: 20190626
